FAERS Safety Report 8832559 (Version 1)
Quarter: 2012Q4

REPORT INFORMATION
  Report Type: 
  Country: US (occurrence: US)
  Receive Date: 20121010
  Receipt Date: 20121010
  Transmission Date: 20130627
  Serious: Yes (Hospitalization)
  Sender: FDA-Public Use
  Company Number: US-BAYER-2012-103831

PATIENT
  Age: 28 Year
  Sex: Female

DRUGS (5)
  1. YAZ [Suspect]
  2. TYLENOL [Concomitant]
     Indication: CHEST PAIN
  3. IBUPROFEN [Concomitant]
  4. VICODIN [Concomitant]
     Indication: CHEST PAIN
  5. ONDANSETRON [Concomitant]

REACTIONS (1)
  - Pulmonary embolism [None]
